FAERS Safety Report 8622939-3 (Version None)
Quarter: 2012Q3

REPORT INFORMATION
  Report Type: 
  Country: None (occurrence: None)
  Receive Date: 20120827
  Receipt Date: 20120823
  Transmission Date: 20120928
  Serious: Yes (Death, Hospitalization, Other)
  Sender: FDA-Public Use
  Company Number: PHFR2012GB003018

PATIENT
  Sex: Male
  Weight: 60 kg

DRUGS (4)
  1. AZATHIOPRINE SODIUM [Concomitant]
     Indication: CROHN'S DISEASE
     Dosage: 100 MG, UNK
     Route: 048
  2. ZOMETA [Suspect]
     Dosage: 5 MG, UNK
     Route: 042
     Dates: start: 20110117
  3. REMICADE [Interacting]
     Indication: CROHN'S DISEASE
     Dosage: 5 MG/KG, 1/8 WEEKS
     Route: 042
     Dates: start: 20110111
  4. PREDNISOLONE [Concomitant]
     Indication: CROHN'S DISEASE

REACTIONS (5)
  - SEPTIC SHOCK [None]
  - MALAISE [None]
  - LEUKOPENIA [None]
  - BRONCHOPNEUMONIA [None]
  - IMMUNOSUPPRESSION [None]
